FAERS Safety Report 12929290 (Version 1)
Quarter: 2016Q4

REPORT INFORMATION
  Report Type: Spontaneous
  Country: US (occurrence: US)
  Receive Date: 20161110
  Receipt Date: 20161110
  Transmission Date: 20170207
  Serious: No
  Sender: FDA-Public Use
  Company Number: US-PFIZER INC-2016524137

PATIENT
  Age: 71 Year
  Sex: Female

DRUGS (5)
  1. BENADRYL [Suspect]
     Active Substance: DIPHENHYDRAMINE HYDROCHLORIDE
     Dosage: UNK
  2. AVASTIN /00848101/ [Suspect]
     Active Substance: SIMVASTATIN
     Dosage: UNK
  3. OXYBENZONE [Suspect]
     Active Substance: OXYBENZONE
     Dosage: UNK
  4. PERCOCET [Suspect]
     Active Substance: ACETAMINOPHEN\OXYCODONE HYDROCHLORIDE
     Dosage: UNK
  5. TALWIN [Suspect]
     Active Substance: PENTAZOCINE LACTATE
     Dosage: UNK

REACTIONS (1)
  - Drug hypersensitivity [Unknown]
